FAERS Safety Report 7016063-3 (Version None)
Quarter: 2010Q3

REPORT INFORMATION
  Report Type: 
  Country: None (occurrence: None)
  Receive Date: 20100927
  Receipt Date: 20100920
  Transmission Date: 20110219
  Serious: Yes (Hospitalization)
  Sender: FDA-Public Use
  Company Number: IT-ABBOTT-10P-083-0665286-00

PATIENT
  Sex: Female

DRUGS (3)
  1. MACLADIN [Suspect]
     Indication: TOOTHACHE
     Route: 048
     Dates: start: 20100810
  2. SYNFLEX (NON-ABBOTT) [Suspect]
     Indication: TOOTHACHE
     Route: 048
     Dates: start: 20100809, end: 20100810
  3. METFORMINA CLORIDRATO [Concomitant]
     Indication: PRODUCT USED FOR UNKNOWN INDICATION
     Route: 048
     Dates: start: 20070101

REACTIONS (4)
  - HYPERHIDROSIS [None]
  - NAUSEA [None]
  - RETCHING [None]
  - SYNCOPE [None]
